FAERS Safety Report 7137566-7 (Version None)
Quarter: 2010Q4

REPORT INFORMATION
  Report Type: 
  Country: None (occurrence: None)
  Receive Date: 20101206
  Receipt Date: 20101201
  Transmission Date: 20110411
  Serious: Yes (Other)
  Sender: FDA-Public Use
  Company Number: CA-SP-2010-03372

PATIENT
  Age: 20 Year
  Sex: Female
  Weight: 86 kg

DRUGS (1)
  1. TUBERSOL [Suspect]
     Indication: TUBERCULIN TEST
     Route: 023
     Dates: start: 20091221, end: 20091221

REACTIONS (4)
  - ERYTHEMA [None]
  - ORAL PRURITUS [None]
  - PRURITUS [None]
  - SWOLLEN TONGUE [None]
